FAERS Safety Report 19257658 (Version 3)
Quarter: 2021Q4

REPORT INFORMATION
  Report Type: Other
  Country: DE (occurrence: DE)
  Receive Date: 20210514
  Receipt Date: 20211007
  Transmission Date: 20220303
  Serious: Yes (Hospitalization, Other)
  Sender: FDA-Public Use
  Company Number: DE-ROCHE-2826769

PATIENT
  Age: 53 Year
  Sex: Female

DRUGS (13)
  1. SATRALIZUMAB [Suspect]
     Active Substance: SATRALIZUMAB
     Indication: Neuromyelitis optica spectrum disorder
     Dosage: NOT REGULAR
     Route: 058
     Dates: start: 20201217
  2. TORSEMIDE [Concomitant]
     Active Substance: TORSEMIDE
     Indication: Oedema
     Dosage: IRREGULAR FREQUENCY
  3. CARBAMAZEPINE [Concomitant]
     Active Substance: CARBAMAZEPINE
     Indication: Dysaesthesia
     Dosage: 2-0-1
     Route: 048
  4. PREGABALIN [Concomitant]
     Active Substance: PREGABALIN
     Indication: Dysaesthesia
     Dosage: 2-0-1
     Route: 048
  5. PANTOPRAZOLE SODIUM [Concomitant]
     Active Substance: PANTOPRAZOLE SODIUM
     Route: 048
  6. POTASSIUM CITRATE [Concomitant]
     Active Substance: POTASSIUM CITRATE
     Route: 048
  7. CHOLECALCIFEROL [Concomitant]
     Active Substance: CHOLECALCIFEROL
  8. CALCIUM [Concomitant]
     Active Substance: CALCIUM
  9. POTASSIUM [Concomitant]
     Active Substance: POTASSIUM
  10. HERBALS [Concomitant]
     Active Substance: HERBALS
  11. COLLAGEN [Concomitant]
     Active Substance: COLLAGEN
  12. DIMETHYL SULFONE [Concomitant]
     Active Substance: DIMETHYL SULFONE
  13. ARTICHOKE [Concomitant]
     Active Substance: ARTICHOKE

REACTIONS (6)
  - Chest pain [Recovered/Resolved]
  - Pain in extremity [Recovered/Resolved]
  - Hypoaesthesia [Recovered/Resolved]
  - Thoracic vertebral fracture [Unknown]
  - Cervicobrachial syndrome [Recovered/Resolved]
  - Arthralgia [Not Recovered/Not Resolved]

NARRATIVE: CASE EVENT DATE: 20210101
